FAERS Safety Report 9330093 (Version 1)
Quarter: 2013Q2

REPORT INFORMATION
  Report Type: Spontaneous
  Country: GB (occurrence: GB)
  Receive Date: 20130604
  Receipt Date: 20130604
  Transmission Date: 20140414
  Serious: Yes (Other)
  Sender: FDA-Public Use
  Company Number: GB-PFIZER INC-2013169248

PATIENT
  Sex: Male

DRUGS (1)
  1. LUSTRAL [Suspect]
     Indication: DEPRESSION
     Dosage: 6 MG, UNK

REACTIONS (1)
  - Drug dependence [Unknown]
